FAERS Safety Report 4847233-8 (Version None)
Quarter: 2005Q4

REPORT INFORMATION
  Report Type: 
  Country: None (occurrence: None)
  Receive Date: 20051207
  Receipt Date: 20050325
  Transmission Date: 20060501
  Serious: Yes (Life-Threatening)
  Sender: FDA-Public Use
  Company Number: FR-GLAXOSMITHKLINE-B0375865A

PATIENT
  Age: 38 Year
  Sex: Female

DRUGS (5)
  1. CLAMOXYL [Suspect]
     Indication: PREMEDICATION
     Dosage: 2G SINGLE DOSE
     Route: 042
     Dates: start: 20050115
  2. MORPHINE [Suspect]
     Indication: SPINAL ANAESTHESIA
     Route: 042
     Dates: start: 20050115
  3. BUPIVACAINE [Suspect]
     Indication: SPINAL ANAESTHESIA
     Route: 065
     Dates: start: 20050115
  4. SUFENTA [Suspect]
     Indication: SPINAL ANAESTHESIA
     Route: 042
     Dates: start: 20050115
  5. TAGAMET [Concomitant]
     Indication: PREMEDICATION
     Route: 065
     Dates: start: 20050115, end: 20050115

REACTIONS (5)
  - CYANOSIS [None]
  - NORMAL NEWBORN [None]
  - RADIOALLERGOSORBENT TEST POSITIVE [None]
  - SHOCK [None]
  - VOMITING [None]
